FAERS Safety Report 23641295 (Version 1)
Quarter: 2024Q1

REPORT INFORMATION
  Report Type: Spontaneous
  Country: US (occurrence: US)
  Receive Date: 20240318
  Receipt Date: 20240318
  Transmission Date: 20240410
  Serious: No
  Sender: FDA-Public Use
  Company Number: US-ALVOGEN-2023092810

PATIENT

DRUGS (1)
  1. LISDEXAMFETAMINE [Suspect]
     Active Substance: LISDEXAMFETAMINE
     Indication: Product used for unknown indication
     Dosage: EXPIRATION DATE: 20-DEC-2024, CII, 100 COUNT
     Route: 048

REACTIONS (2)
  - Drug effect less than expected [Unknown]
  - Product physical issue [Unknown]
